FAERS Safety Report 17369338 (Version 1)
Quarter: 2020Q1

REPORT INFORMATION
  Report Type: Spontaneous
  Country: US (occurrence: US)
  Receive Date: 20200130
  Receipt Date: 20200130
  Transmission Date: 20200409
  Serious: No
  Sender: FDA-Public Use
  Company Number: None

PATIENT
  Age: 72 Year
  Sex: Male

DRUGS (2)
  1. HEPARIN (HEPARIN CA 25000UNT/ML INJ) [Suspect]
     Active Substance: HEPARIN CALCIUM
     Indication: MITRAL VALVE DISEASE
     Dates: start: 20191024, end: 20191026
  2. HEPARIN (HEPARIN CA 25000UNT/ML INJ) [Suspect]
     Active Substance: HEPARIN CALCIUM
     Indication: ATRIAL FIBRILLATION
     Dates: start: 20191024, end: 20191026

REACTIONS (3)
  - Wound haemorrhage [None]
  - Epistaxis [None]
  - Skin wound [None]

NARRATIVE: CASE EVENT DATE: 20191026
